FAERS Safety Report 4957735-1 (Version None)
Quarter: 2006Q1

REPORT INFORMATION
  Report Type: 
  Country: None (occurrence: None)
  Receive Date: 20060330
  Receipt Date: 20060320
  Transmission Date: 20060701
  Serious: Yes (Other)
  Sender: FDA-Public Use
  Company Number: DE-ABBOTT-06P-062-0328715-00

PATIENT
  Sex: Female

DRUGS (7)
  1. SEVORANE LIQUID FOR INHALATION [Suspect]
     Indication: ANAESTHESIA
     Dosage: 0.6 TO 2.5% END TIDAL VOLUME
     Route: 055
     Dates: start: 20060307, end: 20060307
  2. SUFENTANIL CITRATE [Concomitant]
     Indication: INDUCTION OF ANAESTHESIA
     Route: 042
     Dates: start: 20060307, end: 20060307
  3. PROPOFOL [Concomitant]
     Indication: INDUCTION OF ANAESTHESIA
     Route: 042
     Dates: start: 20060307, end: 20060307
  4. PROPOFOL [Concomitant]
     Indication: ANAESTHESIA
     Route: 042
     Dates: start: 20060307, end: 20060307
  5. PROPOFOL [Concomitant]
     Route: 042
     Dates: start: 20060307, end: 20060307
  6. ROCURONIUM [Concomitant]
     Indication: INDUCTION OF ANAESTHESIA
     Route: 042
     Dates: start: 20060307, end: 20060307
  7. REMIFENTANIL [Concomitant]
     Indication: ANAESTHESIA
     Dosage: 0.02 MCG/KG/MIN
     Route: 042
     Dates: start: 20060307, end: 20060307

REACTIONS (2)
  - BLOOD LACTIC ACID INCREASED [None]
  - GRAND MAL CONVULSION [None]
